FAERS Safety Report 18432225 (Version 2)
Quarter: 2020Q4

REPORT INFORMATION
  Report Type: Spontaneous
  Country: BE (occurrence: BE)
  Receive Date: 20201027
  Receipt Date: 20201125
  Transmission Date: 20210114
  Serious: Yes (Other)
  Sender: FDA-Public Use
  Company Number: BE-PFIZER INC-2020410632

PATIENT
  Age: 73 Year
  Sex: Male
  Weight: 89 kg

DRUGS (5)
  1. NEXIAM [ESOMEPRAZOLE MAGNESIUM] [Concomitant]
     Active Substance: ESOMEPRAZOLE MAGNESIUM
     Dosage: 20 MG
  2. EFIENT [Concomitant]
     Active Substance: PRASUGREL HYDROCHLORIDE
     Dosage: 10 MG
  3. LIPITOR [Suspect]
     Active Substance: ATORVASTATIN CALCIUM
     Indication: STENT PLACEMENT
     Dosage: 1 DF, 1X/DAY (1 DF = 40 MG)
     Route: 048
     Dates: start: 20160203, end: 20170202
  4. L-THYROXINE [LEVOTHYROXINE SODIUM] [Concomitant]
     Active Substance: LEVOTHYROXINE SODIUM
     Dosage: 100 UG
  5. NOBITEN [NEBIVOLOL HYDROCHLORIDE] [Concomitant]
     Dosage: 5 MG

REACTIONS (3)
  - Memory impairment [Recovered/Resolved]
  - Disorientation [Recovered/Resolved]
  - Mental impairment [Recovered/Resolved]
